FAERS Safety Report 15434507 (Version 1)
Quarter: 2018Q3

REPORT INFORMATION
  Report Type: Report from Study
  Country: DE (occurrence: DE)
  Receive Date: 20180927
  Receipt Date: 20180927
  Transmission Date: 20181010
  Serious: Yes (Death)
  Sender: FDA-Public Use
  Company Number: DE-MYLANLABS-2018M1069876

PATIENT
  Age: 74 Year
  Sex: Male

DRUGS (4)
  1. OBINUTUZUMAB. [Suspect]
     Active Substance: OBINUTUZUMAB
     Dosage: ON DAY 8 AND DAY 15 OF CYCLE 1 AND DAY 1 OF CYCLE 2 TO 6 (SIX 28?DAY CYCLES)
     Route: 050
  2. BENDAMUSTINE HYDROCHLORIDE. [Suspect]
     Active Substance: BENDAMUSTINE HYDROCHLORIDE
     Indication: CHRONIC LYMPHOCYTIC LEUKAEMIA
     Dosage: OVER A 60 MINUTE PERIOD ON DAY 1 AND DAY 2 OF EACH CYCLE
     Route: 042
  3. OBINUTUZUMAB. [Suspect]
     Active Substance: OBINUTUZUMAB
     Indication: CHRONIC LYMPHOCYTIC LEUKAEMIA
     Dosage: AT INFUSION RATE OF 12.5 MG/H ON DAY 1 OF CYCLE 1 (SIX 28?DAY CYCLES)
     Route: 050
  4. OBINUTUZUMAB. [Suspect]
     Active Substance: OBINUTUZUMAB
     Dosage: AT INFUSION RATE OF 50 MG/H ON DAY 2 OF CYCLE 1 (SIX 28?DAY CYCLES)
     Route: 050

REACTIONS (2)
  - Metastases to central nervous system [Fatal]
  - Adenocarcinoma [Fatal]
